FAERS Safety Report 19274503 (Version 1)
Quarter: 2021Q2

REPORT INFORMATION
  Report Type: Spontaneous
  Country: CN (occurrence: CN)
  Receive Date: 20210519
  Receipt Date: 20210519
  Transmission Date: 20210717
  Serious: Yes (Hospitalization)
  Sender: FDA-Public Use
  Company Number: CN-B.I. PHARMACEUTICALS,INC./RIDGEFIELD-2021-BI-103030

PATIENT
  Age: 77 Year
  Sex: Male
  Weight: 60 kg

DRUGS (4)
  1. TRAJENTA [Suspect]
     Active Substance: LINAGLIPTIN
     Indication: TYPE 2 DIABETES MELLITUS
     Route: 048
     Dates: start: 2020
  2. NOVOLIN 30R [INSULIN] [Concomitant]
     Active Substance: INSULIN HUMAN
     Indication: TYPE 2 DIABETES MELLITUS
     Route: 058
  3. HUMALOG MIX50/50 [Suspect]
     Active Substance: INSULIN LISPRO
     Indication: TYPE 2 DIABETES MELLITUS
     Dosage: UNIT DOSE: 16 UNITS IN THE MORNING AND 14 UNITS IN THE EVENING
     Route: 058
     Dates: start: 2018
  4. TRAJENTA [Suspect]
     Active Substance: LINAGLIPTIN
     Route: 048
     Dates: start: 20210511

REACTIONS (3)
  - Weight decreased [Unknown]
  - Urinary tract infection [Recovered/Resolved]
  - Blood glucose increased [Not Recovered/Not Resolved]

NARRATIVE: CASE EVENT DATE: 202012
